FAERS Safety Report 8155435-0 (Version None)
Quarter: 2012Q1

REPORT INFORMATION
  Report Type: 
  Country: None (occurrence: None)
  Receive Date: 20120206
  Receipt Date: 20120203
  Transmission Date: 20120608
  Serious: Yes (Other)
  Sender: FDA-Public Use
  Company Number: 2012030976

PATIENT
  Age: 43 Year
  Sex: Female

DRUGS (1)
  1. PRIVIGEN [Suspect]
     Indication: HYPOGAMMAGLOBULINAEMIA
     Route: 042
     Dates: start: 20120125, end: 20120125

REACTIONS (6)
  - DYSPNOEA [None]
  - COUGH [None]
  - FLUSHING [None]
  - HYPOXIA [None]
  - ANXIETY [None]
  - NAUSEA [None]
